FAERS Safety Report 8364035-9 (Version None)
Quarter: 2012Q2

REPORT INFORMATION
  Report Type: 
  Country: None (occurrence: None)
  Receive Date: 20120516
  Receipt Date: 20120511
  Transmission Date: 20120825
  Serious: Yes (Death)
  Sender: FDA-Public Use
  Company Number: GB-BAUSCH-2012BL002949

PATIENT
  Age: 43 Year
  Sex: Female
  Weight: 79 kg

DRUGS (15)
  1. LAPATINIB [Suspect]
     Indication: BREAST CANCER METASTATIC
     Dates: start: 20110222, end: 20110921
  2. DEXAMETHASONE [Suspect]
     Dates: start: 20110801
  3. ETOPOSIDE [Suspect]
     Indication: BRAIN CANCER METASTATIC
  4. ACETAMINOPHEN [Concomitant]
  5. DEXAMETHASONE [Suspect]
     Dates: start: 20111001
  6. DEXAMETHASONE [Suspect]
     Dates: start: 20111001
  7. HERCEPTIN [Concomitant]
  8. DEXAMETHASONE [Suspect]
     Dates: start: 20110801
  9. DOCETAXEL [Concomitant]
  10. DEXAMETHASONE [Suspect]
     Route: 042
     Dates: start: 20111101
  11. CARBOPLATIN [Suspect]
     Indication: BREAST CANCER METASTATIC
  12. DEXAMETHASONE [Suspect]
     Dates: start: 20110801
  13. DEXAMETHASONE [Suspect]
     Indication: METASTASES TO CENTRAL NERVOUS SYSTEM
     Dates: start: 20100901, end: 20101001
  14. CAPECITABINE [Suspect]
     Indication: BREAST CANCER METASTATIC
     Dates: start: 20110222
  15. IBUPROFEN [Concomitant]

REACTIONS (25)
  - FOOD CRAVING [None]
  - POLLAKIURIA [None]
  - AGGRESSION [None]
  - TOOTH DISORDER [None]
  - URINARY TRACT DISORDER [None]
  - VOMITING [None]
  - DIARRHOEA [None]
  - OEDEMA [None]
  - HEADACHE [None]
  - NAIL INFECTION [None]
  - FATIGUE [None]
  - DYSARTHRIA [None]
  - PYURIA [None]
  - BREAST CANCER METASTATIC [None]
  - DRUG INEFFECTIVE [None]
  - INGROWING NAIL [None]
  - DYSPEPSIA [None]
  - CONFUSIONAL STATE [None]
  - DROOLING [None]
  - HYPOAESTHESIA [None]
  - BALANCE DISORDER [None]
  - MOUTH ULCERATION [None]
  - NAUSEA [None]
  - TREATMENT NONCOMPLIANCE [None]
  - NEUTROPHILIA [None]
